FAERS Safety Report 5591469-8 (Version None)
Quarter: 2007Q4

REPORT INFORMATION
  Report Type: 
  Country: None (occurrence: None)
  Receive Date: 20071212
  Receipt Date: 20070801
  Transmission Date: 20080405
  Serious: No
  Sender: FDA-Public Use
  Company Number: USA-2007-0028639

PATIENT
  Age: 31 Year
  Sex: Female

DRUGS (3)
  1. OXYCONTIN [Suspect]
     Indication: PAIN
     Dosage: 40 MG, Q8H, ORAL
     Route: 048
  2. VICODIN [Suspect]
     Indication: PAIN
     Dosage: ORAL
     Route: 048
  3. PERCOCET [Suspect]
     Indication: PAIN
     Dosage: ORAL
     Route: 048

REACTIONS (1)
  - ACCIDENTAL OVERDOSE [None]
